FAERS Safety Report 4478203-X (Version None)
Quarter: 2004Q3

REPORT INFORMATION
  Report Type: 
  Country: None (occurrence: None)
  Receive Date: 20040923
  Receipt Date: 20040625
  Transmission Date: 20050211
  Serious: No
  Sender: FDA-Public Use
  Company Number: USA040671119

PATIENT
  Age: 86 Year
  Sex: Female

DRUGS (2)
  1. FORTEO [Suspect]
     Indication: OSTEOPOROSIS
     Dosage: 20 UGDAY
     Dates: start: 20040618
  2. OXYTROL (OXYBURYNIN) [Concomitant]

REACTIONS (2)
  - CYSTITIS [None]
  - DYSURIA [None]
